FAERS Safety Report 16105743 (Version 1)
Quarter: 2019Q1

REPORT INFORMATION
  Report Type: Report from Study
  Country: CO (occurrence: CO)
  Receive Date: 20190322
  Receipt Date: 20190322
  Transmission Date: 20190418
  Serious: Yes (Hospitalization, Other)
  Sender: FDA-Public Use
  Company Number: CO-SA-2018SA047594

PATIENT
  Age: 32 Year
  Sex: Male

DRUGS (1)
  1. ALEMTUZUMAB [Suspect]
     Active Substance: ALEMTUZUMAB
     Indication: MULTIPLE SCLEROSIS
     Dosage: UNK UNK,QD
     Route: 041
     Dates: start: 20180212, end: 20180216

REACTIONS (22)
  - Neutrophil count increased [Recovered/Resolved]
  - Diarrhoea [Unknown]
  - White blood cell count decreased [Recovered/Resolved]
  - Leukocyturia [Not Recovered/Not Resolved]
  - Haematochezia [Unknown]
  - Haematocrit decreased [Not Recovered/Not Resolved]
  - Pyrexia [Unknown]
  - White blood cell count increased [Recovered/Resolved]
  - Platelet count decreased [Recovered/Resolved]
  - Crystal urine present [Not Recovered/Not Resolved]
  - Monocyte count increased [Recovered/Resolved]
  - Red blood cell count decreased [Not Recovered/Not Resolved]
  - Lymphocyte count decreased [Not Recovered/Not Resolved]
  - Monocyte count decreased [Recovered/Resolved]
  - Haematuria [Recovered/Resolved]
  - Hypoaesthesia [Unknown]
  - Haemoglobin decreased [Not Recovered/Not Resolved]
  - Abdominal pain [Unknown]
  - Urobilinogen urine [Recovered/Resolved]
  - Eosinophil count decreased [Recovered/Resolved]
  - Bacteriuria [Recovered/Resolved]
  - Red blood cells urine [Not Recovered/Not Resolved]

NARRATIVE: CASE EVENT DATE: 20180217
